FAERS Safety Report 5678466-9 (Version None)
Quarter: 2008Q1

REPORT INFORMATION
  Report Type: 
  Country: None (occurrence: None)
  Receive Date: 20080325
  Receipt Date: 20080314
  Transmission Date: 20080703
  Serious: Yes (Hospitalization)
  Sender: FDA-Public Use
  Company Number: US-JNJFOC-20080303742

PATIENT
  Sex: Female
  Weight: 49.9 kg

DRUGS (1)
  1. REMICADE [Suspect]
     Indication: CROHN'S DISEASE
     Dosage: ABOUT 4 YEARS
     Route: 042

REACTIONS (2)
  - STAPHYLOCOCCAL INFECTION [None]
  - THROMBOSIS [None]
